FAERS Safety Report 14128153 (Version 1)
Quarter: 2017Q4

REPORT INFORMATION
  Report Type: Spontaneous
  Country: US (occurrence: None)
  Receive Date: 20171025
  Receipt Date: 20171025
  Transmission Date: 20180321
  Serious: Yes (Hospitalization)
  Sender: FDA-Public Use
  Company Number: None

PATIENT
  Age: 72 Year
  Sex: Male
  Weight: 84.01 kg

DRUGS (2)
  1. HEPARIN [Suspect]
     Active Substance: HEPARIN SODIUM
     Indication: ANTICOAGULANT THERAPY
     Dates: start: 20170717, end: 20170720
  2. WARFARIN [Suspect]
     Active Substance: WARFARIN
     Indication: AORTIC VALVE REPAIR
     Dates: start: 19970101, end: 20170720

REACTIONS (4)
  - Hypotension [None]
  - Dizziness [None]
  - Haematochezia [None]
  - Gastric haemorrhage [None]

NARRATIVE: CASE EVENT DATE: 20170720
